FAERS Safety Report 8237204-6 (Version None)
Quarter: 2012Q1

REPORT INFORMATION
  Report Type: 
  Country: None (occurrence: None)
  Receive Date: 20120327
  Receipt Date: 20120327
  Transmission Date: 20120608
  Serious: Yes (Hospitalization)
  Sender: FDA-Public Use
  Company Number: None

PATIENT
  Age: 74 Year
  Sex: Male
  Weight: 48.534 kg

DRUGS (2)
  1. CILASTAZOL [Concomitant]
     Dosage: 100MG
     Route: 048
  2. ENOXAPARIN [Suspect]
     Dosage: 40MG
     Route: 058

REACTIONS (2)
  - HAEMATEMESIS [None]
  - GASTROINTESTINAL HAEMORRHAGE [None]
